FAERS Safety Report 23197879 (Version 1)
Quarter: 2023Q4

REPORT INFORMATION
  Report Type: Spontaneous
  Country: US (occurrence: None)
  Receive Date: 20231116
  Receipt Date: 20231116
  Transmission Date: 20240109
  Serious: No
  Sender: FDA-Public Use
  Company Number: None

PATIENT
  Age: 42 Year
  Sex: Male

DRUGS (5)
  1. REPATHA [Suspect]
     Active Substance: EVOLOCUMAB
     Indication: Hyperlipidaemia
     Dosage: 140 MG EVERY 2 WEEKS SUBQ?
     Route: 058
     Dates: start: 20230614
  2. METOPROLOL [Concomitant]
     Active Substance: METOPROLOL
  3. aspirin [Concomitant]
  4. nitroglyceirn [Concomitant]
  5. PRASUGREL [Concomitant]
     Active Substance: PRASUGREL

REACTIONS (2)
  - Diarrhoea [None]
  - Stent placement [None]

NARRATIVE: CASE EVENT DATE: 20230706
